FAERS Safety Report 4763894-6 (Version None)
Quarter: 2005Q3

REPORT INFORMATION
  Report Type: 
  Country: None (occurrence: None)
  Receive Date: 20050906
  Receipt Date: 20050509
  Transmission Date: 20060218
  Serious: No
  Sender: FDA-Public Use
  Company Number: 2005-BP-07785BP

PATIENT
  Age: 83 Year
  Sex: Female
  Weight: 57 kg

DRUGS (5)
  1. SPIRIVA [Suspect]
     Indication: CHRONIC OBSTRUCTIVE PULMONARY DISEASE
     Dosage: 18 MCG (18 MCG QD) IH
     Route: 055
     Dates: start: 20041014, end: 20050512
  2. ADVAIR DISKUS 100/50 [Concomitant]
  3. CARDIZEM [Concomitant]
  4. LANOXIN [Concomitant]
  5. SINGULAIR (MONTELEUKAST) [Concomitant]

REACTIONS (5)
  - BRONCHITIS [None]
  - COUGH [None]
  - ORAL CANDIDIASIS [None]
  - SALIVARY GLAND DISORDER [None]
  - SALIVARY GLAND ENLARGEMENT [None]
